FAERS Safety Report 6800750-3 (Version None)
Quarter: 2010Q2

REPORT INFORMATION
  Report Type: 
  Country: None (occurrence: None)
  Receive Date: 20100629
  Receipt Date: 20100629
  Transmission Date: 20101027
  Serious: Yes (Hospitalization)
  Sender: FDA-Public Use
  Company Number: None

PATIENT
  Sex: Female
  Weight: 14.0615 kg

DRUGS (1)
  1. CHILDREN'S MOTRIN [Suspect]
     Indication: PYREXIA
     Dosage: 1 TSP. ONE TIME PO
     Route: 048
     Dates: start: 20100613, end: 20100613

REACTIONS (2)
  - FEBRILE CONVULSION [None]
  - PRODUCT QUALITY ISSUE [None]
